FAERS Safety Report 20159953 (Version 2)
Quarter: 2022Q1

REPORT INFORMATION
  Report Type: Spontaneous
  Country: PT (occurrence: PT)
  Receive Date: 20211208
  Receipt Date: 20220111
  Transmission Date: 20220424
  Serious: Yes (Other)
  Sender: FDA-Public Use
  Company Number: None

PATIENT
  Age: 58 Year
  Sex: Male

DRUGS (1)
  1. PEMBROLIZUMAB [Suspect]
     Active Substance: PEMBROLIZUMAB
     Indication: Mesothelioma
     Dosage: 200 MG 21/21 DAYS
     Route: 042
     Dates: start: 20210812, end: 20210923

REACTIONS (1)
  - Secondary hypothyroidism [Unknown]

NARRATIVE: CASE EVENT DATE: 20210910
